FAERS Safety Report 10005256 (Version 2)
Quarter: 2014Q2

REPORT INFORMATION
  Report Type: Spontaneous
  Country: GB (occurrence: GB)
  Receive Date: 20140312
  Receipt Date: 20140410
  Transmission Date: 20141212
  Serious: Yes (Hospitalization)
  Sender: FDA-Public Use
  Company Number: GB-MYLANLABS-2014S1004764

PATIENT
  Age: 57 Year
  Sex: Male
  Weight: 113 kg

DRUGS (7)
  1. LANSOPRAZOLE [Concomitant]
     Route: 042
     Dates: start: 20130508
  2. PERINDOPRIL [Concomitant]
     Route: 042
     Dates: start: 20130529
  3. EPIRUBICIN [Suspect]
     Indication: GASTRIC CANCER
     Dosage: MOST RECENT DOSE ADMINISTERED: 29/MAY/2013
     Route: 042
     Dates: start: 20130508
  4. AVASTIN /01555201/ [Suspect]
     Indication: GASTRIC CANCER
     Dosage: MOST RECENT DOSE ADMINISTERED: 08/MAY/2013.
     Route: 042
     Dates: start: 20130508
  5. CISPLATIN [Suspect]
     Indication: GASTRIC CANCER
     Dosage: MOST RECENT DOSE ADMINISTERED: 29/MAY/2013.
     Route: 042
     Dates: start: 20130508
  6. XELODA [Suspect]
     Indication: GASTRIC CANCER
     Dosage: MOST RECENT DOSE ADMINISTERED: 29/MAY/2013.
     Route: 048
     Dates: start: 20130508
  7. BISOPROLOL [Concomitant]
     Route: 042
     Dates: start: 20130612

REACTIONS (2)
  - Chest pain [Not Recovered/Not Resolved]
  - Pyrexia [Recovered/Resolved]
